FAERS Safety Report 8055082-5 (Version None)
Quarter: 2012Q1

REPORT INFORMATION
  Report Type: 
  Country: None (occurrence: None)
  Receive Date: 20120119
  Receipt Date: 20120111
  Transmission Date: 20120608
  Serious: Yes (Hospitalization)
  Sender: FDA-Public Use
  Company Number: US-US-EMD SERONO, INC.-7101547

PATIENT
  Sex: Female

DRUGS (1)
  1. REBIF [Suspect]
     Indication: MULTIPLE SCLEROSIS
     Route: 058
     Dates: start: 20041116

REACTIONS (6)
  - GAIT DISTURBANCE [None]
  - COLD SWEAT [None]
  - KNEE ARTHROPLASTY [None]
  - DIARRHOEA [None]
  - MULTIPLE SCLEROSIS RELAPSE [None]
  - JOINT STIFFNESS [None]
